FAERS Safety Report 25705466 (Version 1)
Quarter: 2025Q3

REPORT INFORMATION
  Report Type: Spontaneous
  Country: US (occurrence: US)
  Receive Date: 20250820
  Receipt Date: 20250820
  Transmission Date: 20251021
  Serious: No
  Sender: GLAXOSMITHKLINE
  Company Number: US-GSK-US2025AMR094910

PATIENT
  Sex: Female

DRUGS (3)
  1. BENLYSTA [Suspect]
     Active Substance: BELIMUMAB
     Indication: Lupus nephritis
     Dosage: 200 MG, WE
     Dates: start: 202209
  2. BENLYSTA [Suspect]
     Active Substance: BELIMUMAB
     Indication: Systemic lupus erythematosus
  3. LEXAPRO [Concomitant]
     Active Substance: ESCITALOPRAM OXALATE
     Indication: Product used for unknown indication

REACTIONS (2)
  - Mental status changes [Unknown]
  - Adverse drug reaction [Unknown]
